FAERS Safety Report 5075220-6 (Version None)
Quarter: 2006Q3

REPORT INFORMATION
  Report Type: 
  Country: None (occurrence: None)
  Receive Date: 20060807
  Receipt Date: 20060807
  Transmission Date: 20061208
  Serious: Yes (Other)
  Sender: FDA-Public Use
  Company Number: None

PATIENT
  Sex: Female
  Weight: 67 kg

DRUGS (5)
  1. MYFORTIC [Suspect]
     Indication: PROPHYLAXIS AGAINST TRANSPLANT REJECTION
     Dosage: 1080MG PO BID
     Route: 048
     Dates: start: 20060613, end: 20060623
  2. MYFORTIC [Suspect]
     Indication: RENAL TRANSPLANT
     Dosage: 1080MG PO BID
     Route: 048
     Dates: start: 20060613, end: 20060623
  3. TACROLIMUS [Concomitant]
  4. CORTICOSTEROIDS [Concomitant]
  5. THYMOGLOBULIN [Concomitant]

REACTIONS (5)
  - COMPLICATIONS OF TRANSPLANTED KIDNEY [None]
  - COUGH [None]
  - GRAFT COMPLICATION [None]
  - INCISION SITE HAEMORRHAGE [None]
  - RETCHING [None]
